FAERS Safety Report 21624352 (Version 1)
Quarter: 2022Q4

REPORT INFORMATION
  Report Type: Report from Study
  Country: US (occurrence: US)
  Receive Date: 20221121
  Receipt Date: 20221121
  Transmission Date: 20230113
  Serious: No
  Sender: FDA-Public Use
  Company Number: US-ABBVIE-4177724

PATIENT
  Sex: Female

DRUGS (2)
  1. RINVOQ [Suspect]
     Active Substance: UPADACITINIB
     Indication: Rheumatoid arthritis
     Route: 048
     Dates: start: 202204
  2. MODERNA COVID-19 VACCINE [Concomitant]
     Active Substance: ELASOMERAN
     Indication: COVID-19 immunisation

REACTIONS (8)
  - COVID-19 [Unknown]
  - Respiratory disorder [Unknown]
  - Inflammation [Unknown]
  - Eczema [Unknown]
  - Swelling [Unknown]
  - Rash [Unknown]
  - Pain [Unknown]
  - Dermatitis atopic [Unknown]
